FAERS Safety Report 6743529-3 (Version None)
Quarter: 2010Q2

REPORT INFORMATION
  Report Type: 
  Country: None (occurrence: None)
  Receive Date: 20100526
  Receipt Date: 20100526
  Transmission Date: 20101027
  Serious: No
  Sender: FDA-Public Use
  Company Number: None

PATIENT
  Sex: Male
  Weight: 77.1115 kg

DRUGS (2)
  1. VERAPAMIL EXTENDED-RELEASE [Suspect]
     Indication: ATRIAL FIBRILLATION
     Dosage: 1-TAB AM+PM(2) ORAL 10+ YEARS
     Route: 048
  2. VERAPAMIL EXTENDED-RELEASE [Suspect]
     Indication: HYPERTENSION
     Dosage: 1-TAB AM+PM(2) ORAL 10+ YEARS
     Route: 048

REACTIONS (1)
  - DRUG EFFECT DECREASED [None]
